FAERS Safety Report 19941693 (Version 3)
Quarter: 2021Q4

REPORT INFORMATION
  Report Type: Spontaneous
  Country: US (occurrence: US)
  Receive Date: 20211011
  Receipt Date: 20211115
  Transmission Date: 20220303
  Serious: Yes (Other)
  Sender: FDA-Public Use
  Company Number: US-BAYER-2021A226357

PATIENT
  Age: 47 Year

DRUGS (4)
  1. KOGENATE FS [Suspect]
     Active Substance: ANTIHEMOPHILIC FACTOR, HUMAN RECOMBINANT
     Dosage: UNK
  2. KOGENATE FS [Suspect]
     Active Substance: ANTIHEMOPHILIC FACTOR, HUMAN RECOMBINANT
     Dosage: 4000 IU, BID, FOR THE MUSCLE HAEMORRHAGE AND MUSCLE INJURY TREATMENT
     Route: 042
  3. KOGENATE FS [Suspect]
     Active Substance: ANTIHEMOPHILIC FACTOR, HUMAN RECOMBINANT
     Dosage: 4000 IU, FOR PRECAUTION DUE TO INCREASED ACTIVITIES
     Route: 042
  4. KOGENATE FS [Suspect]
     Active Substance: ANTIHEMOPHILIC FACTOR, HUMAN RECOMBINANT
     Dosage: 4800 IU
     Route: 042

REACTIONS (3)
  - Muscle haemorrhage [None]
  - Muscle injury [None]
  - Subcutaneous haematoma [None]

NARRATIVE: CASE EVENT DATE: 20210102
